FAERS Safety Report 10070531 (Version 3)
Quarter: 2014Q2

REPORT INFORMATION
  Report Type: Spontaneous
  Country: US (occurrence: US)
  Receive Date: 20140410
  Receipt Date: 20140425
  Transmission Date: 20141212
  Serious: Yes (Hospitalization)
  Sender: FDA-Public Use
  Company Number: US-BEH-2012031624

PATIENT
  Age: 16 Year
  Sex: Female
  Weight: 52 kg

DRUGS (11)
  1. BERINERT [Suspect]
     Route: 042
     Dates: start: 20120126
  2. BERINERT [Suspect]
     Indication: HEREDITARY ANGIOEDEMA
     Route: 042
     Dates: start: 20120422
  3. BERINERT [Suspect]
     Dosage: 500 UNIT VIAL;4 ML/MINUTE
     Route: 042
  4. BERINERT [Suspect]
     Route: 042
  5. BERINERT [Suspect]
     Dosage: 500 UNITS/10 ML; 4ML/MIN
     Route: 042
  6. HEPARIN [Concomitant]
     Dosage: 100 UNITS/ML
  7. SODIUM CHLORIDE [Concomitant]
     Indication: PREMEDICATION
  8. LEVOCETIRIZINE [Concomitant]
     Dosage: 5 MG
     Route: 048
  9. HYDROXYZINE [Concomitant]
     Dosage: 10 MG
     Route: 048
  10. TYLENOL [Concomitant]
     Dosage: 325 MG CAPLET
     Route: 048
  11. EPIPEN [Concomitant]

REACTIONS (7)
  - Viral infection [Unknown]
  - Device related infection [Unknown]
  - Headache [Unknown]
  - Nausea [Unknown]
  - Cold sweat [Unknown]
  - Chills [Unknown]
  - Device occlusion [Unknown]
